FAERS Safety Report 15230178 (Version 1)
Quarter: 2018Q3

REPORT INFORMATION
  Report Type: Spontaneous
  Country: US (occurrence: US)
  Receive Date: 20180802
  Receipt Date: 20180802
  Transmission Date: 20181010
  Serious: Yes (Other)
  Sender: FDA-Public Use
  Company Number: US-ACCORD-066497

PATIENT
  Age: 52 Year
  Sex: Female
  Weight: 88.9 kg

DRUGS (3)
  1. CARVEDILOL/CARVEDILOL HYDROCHLODRIDE [Concomitant]
  2. DOCETAXEL ACCORD [Suspect]
     Active Substance: DOCETAXEL
     Indication: BREAST CANCER
     Dosage: NUMBER OF CYCLES: 04
     Dates: start: 20130917, end: 20131119
  3. CYANOCOBALAMIN. [Concomitant]
     Active Substance: CYANOCOBALAMIN
     Dates: start: 201203

REACTIONS (1)
  - Alopecia [Not Recovered/Not Resolved]
